FAERS Safety Report 19623394 (Version 1)
Quarter: 2021Q3

REPORT INFORMATION
  Report Type: Spontaneous
  Country: US (occurrence: US)
  Receive Date: 20210728
  Receipt Date: 20210728
  Transmission Date: 20211014
  Serious: Yes (Other)
  Sender: FDA-Public Use
  Company Number: US-LUPIN PHARMACEUTICALS INC.-2021-13022

PATIENT
  Sex: Female

DRUGS (16)
  1. FLUTICASONE. [Suspect]
     Active Substance: FLUTICASONE
     Indication: SJOGREN^S SYNDROME
     Dosage: UNK
     Route: 045
  2. TURMERIC [Suspect]
     Active Substance: HERBALS\TURMERIC
     Indication: OBLITERATIVE BRONCHIOLITIS
  3. FLUTICASONE. [Suspect]
     Active Substance: FLUTICASONE
     Indication: OBLITERATIVE BRONCHIOLITIS
  4. TURMERIC [Suspect]
     Active Substance: HERBALS\TURMERIC
     Indication: SJOGREN^S SYNDROME
     Dosage: UNK
     Route: 065
  5. MONTELUKAST [Suspect]
     Active Substance: MONTELUKAST SODIUM
     Indication: SJOGREN^S SYNDROME
     Dosage: UNK
     Route: 065
  6. MONTELUKAST [Suspect]
     Active Substance: MONTELUKAST SODIUM
     Indication: OBLITERATIVE BRONCHIOLITIS
  7. FORMOTEROL [Suspect]
     Active Substance: FORMOTEROL
     Indication: OBLITERATIVE BRONCHIOLITIS
  8. OMEGA 3 [Suspect]
     Active Substance: OMEGA-3 FATTY ACIDS
     Indication: SJOGREN^S SYNDROME
     Dosage: UNK
     Route: 065
  9. RITUXIMAB. [Concomitant]
     Active Substance: RITUXIMAB
     Indication: SJOGREN^S SYNDROME
     Dosage: 1000 MILLIGRAM, 2 WEEKS APART
     Route: 042
  10. RITUXIMAB. [Concomitant]
     Active Substance: RITUXIMAB
     Indication: OBLITERATIVE BRONCHIOLITIS
  11. MULTIVITAMIN [Suspect]
     Active Substance: VITAMINS
     Indication: OBLITERATIVE BRONCHIOLITIS
  12. FORMOTEROL [Suspect]
     Active Substance: FORMOTEROL
     Indication: SJOGREN^S SYNDROME
     Dosage: UNK
  13. MULTIVITAMIN [Suspect]
     Active Substance: VITAMINS
     Indication: SJOGREN^S SYNDROME
     Dosage: UNK
     Route: 065
  14. OMEGA 3 [Suspect]
     Active Substance: OMEGA-3 FATTY ACIDS
     Indication: OBLITERATIVE BRONCHIOLITIS
  15. BUDESONIDE. [Suspect]
     Active Substance: BUDESONIDE
     Indication: SJOGREN^S SYNDROME
     Dosage: UNK
  16. BUDESONIDE. [Suspect]
     Active Substance: BUDESONIDE
     Indication: OBLITERATIVE BRONCHIOLITIS

REACTIONS (1)
  - Therapy non-responder [Unknown]
